FAERS Safety Report 21738787 (Version 6)
Quarter: 2023Q2

REPORT INFORMATION
  Report Type: Report from Study
  Country: US (occurrence: US)
  Receive Date: 20221216
  Receipt Date: 20230408
  Transmission Date: 20230722
  Serious: Yes (Other)
  Sender: FDA-Public Use
  Company Number: US-002147023-NVSC2022US289295

PATIENT
  Sex: Female

DRUGS (2)
  1. COSENTYX [Suspect]
     Active Substance: SECUKINUMAB
     Indication: Psoriatic arthropathy
     Dosage: 150 MG
     Route: 065
  2. COSENTYX [Suspect]
     Active Substance: SECUKINUMAB
     Dosage: 150 MG (JUST COMPLETED HER 4TH LOADING DOSE)
     Route: 065

REACTIONS (6)
  - Psoriatic arthropathy [Unknown]
  - Musculoskeletal stiffness [Recovering/Resolving]
  - Joint swelling [Unknown]
  - Ill-defined disorder [Recovering/Resolving]
  - Lymphadenopathy [Unknown]
  - Lower respiratory tract infection [Unknown]
